FAERS Safety Report 8881107 (Version 1)
Quarter: 2012Q4

REPORT INFORMATION
  Report Type: 
  Country: CA (occurrence: CA)
  Receive Date: 20121031
  Receipt Date: 20121031
  Transmission Date: 20130627
  Serious: No
  Sender: FDA-Public Use
  Company Number: CA-TEVA-364981USA

PATIENT
  Age: 28 Year
  Sex: Female

DRUGS (1)
  1. PLAN B [Suspect]
     Indication: CONTRACEPTION
     Dosage: 1.5 Milligram Daily;
     Route: 048
     Dates: start: 20111225, end: 20111225

REACTIONS (2)
  - Pregnancy after post coital contraception [Not Recovered/Not Resolved]
  - Drug ineffective [Not Recovered/Not Resolved]
